FAERS Safety Report 9316231 (Version 2)
Quarter: 2013Q2

REPORT INFORMATION
  Report Type: Spontaneous
  Country: BR (occurrence: BR)
  Receive Date: 20130530
  Receipt Date: 20130625
  Transmission Date: 20140414
  Serious: Yes (Hospitalization, Other)
  Sender: FDA-Public Use
  Company Number: BR-AMGEN-BRASP2013038221

PATIENT
  Sex: Female

DRUGS (1)
  1. ENBREL [Suspect]
     Indication: PSORIATIC ARTHROPATHY
     Dosage: 50 MG, ONCE WEEKLY
     Route: 065
     Dates: end: 2013

REACTIONS (2)
  - Depressed level of consciousness [Unknown]
  - Localised infection [Unknown]
